FAERS Safety Report 21507503 (Version 3)
Quarter: 2024Q1

REPORT INFORMATION
  Report Type: Spontaneous
  Country: DE (occurrence: DE)
  Receive Date: 20221026
  Receipt Date: 20240223
  Transmission Date: 20240410
  Serious: Yes (Death, Hospitalization)
  Sender: FDA-Public Use
  Company Number: DE-NOVARTISPH-NVSC2022DE239816

PATIENT
  Age: 65 Year
  Sex: Female

DRUGS (6)
  1. RITUXIMAB [Suspect]
     Active Substance: RITUXIMAB
     Indication: Diffuse large B-cell lymphoma
     Dosage: 638 MG, QD
     Route: 042
     Dates: start: 20221007, end: 20221007
  2. CARBOPLATIN [Suspect]
     Active Substance: CARBOPLATIN
     Indication: Diffuse large B-cell lymphoma
     Dosage: 997 MG, QD
     Route: 042
     Dates: start: 20221008, end: 20221008
  3. ETOPOSIDE [Suspect]
     Active Substance: ETOPOSIDE
     Indication: Diffuse large B-cell lymphoma
     Dosage: 170 MG, QD
     Route: 065
     Dates: start: 20221007, end: 20221010
  4. IFOSFAMIDE [Suspect]
     Active Substance: IFOSFAMIDE
     Indication: Diffuse large B-cell lymphoma
     Dosage: 8500 MG, QD
     Route: 042
     Dates: start: 20221008, end: 20221009
  5. ATORVASTATIN [Concomitant]
     Active Substance: ATORVASTATIN
     Indication: Dyslipidaemia
     Dosage: 20 MG, QD
     Route: 065
     Dates: start: 20200212
  6. ATORVASTATIN [Concomitant]
     Active Substance: ATORVASTATIN
     Indication: Metabolic syndrome

REACTIONS (4)
  - Cardiac failure congestive [Fatal]
  - Acute kidney injury [Fatal]
  - Septic shock [Fatal]
  - Gastrointestinal haemorrhage [Fatal]

NARRATIVE: CASE EVENT DATE: 20221009
